FAERS Safety Report 10205994 (Version 1)
Quarter: 2014Q2

REPORT INFORMATION
  Report Type: Spontaneous
  Country: US (occurrence: US)
  Receive Date: 20140530
  Receipt Date: 20140530
  Transmission Date: 20141212
  Serious: Yes (Death)
  Sender: FDA-Public Use
  Company Number: US-AMGEN-USASP2014038895

PATIENT
  Age: 85 Year
  Sex: Male

DRUGS (3)
  1. PROLIA [Suspect]
     Indication: PRODUCT USED FOR UNKNOWN INDICATION
     Dosage: 60 MG/ML, Q6MO
     Route: 065
  2. ALENDRONATE [Concomitant]
     Dosage: UNK UNK, QD
  3. VITAMIN D                          /00107901/ [Concomitant]
     Dosage: UNK UNK, QD

REACTIONS (1)
  - Death [Fatal]
